FAERS Safety Report 8216645-7 (Version None)
Quarter: 2012Q1

REPORT INFORMATION
  Report Type: 
  Country: None (occurrence: None)
  Receive Date: 20120316
  Receipt Date: 20120312
  Transmission Date: 20120608
  Serious: Yes (Death, Hospitalization)
  Sender: FDA-Public Use
  Company Number: IE-MEDIMMUNE-MEDI-0013937

PATIENT
  Sex: Female

DRUGS (2)
  1. OXYGEN [Concomitant]
  2. SYNAGIS [Suspect]
     Route: 030

REACTIONS (4)
  - MALAISE [None]
  - CARDIAC ARREST [None]
  - APNOEA [None]
  - INFECTION [None]
